FAERS Safety Report 6325017-1 (Version None)
Quarter: 2009Q3

REPORT INFORMATION
  Report Type: 
  Country: None (occurrence: None)
  Receive Date: 20090824
  Receipt Date: 20090616
  Transmission Date: 20100115
  Serious: No
  Sender: FDA-Public Use
  Company Number: US-ABBOTT-09P-163-0579984-00

PATIENT
  Sex: Female
  Weight: 86.26 kg

DRUGS (10)
  1. NIASPAN [Suspect]
     Indication: DRUG USE FOR UNKNOWN INDICATION
     Dates: start: 20070101, end: 20070101
  2. NIASPAN [Suspect]
     Dates: start: 20090530
  3. AMLODIPINE [Concomitant]
     Indication: DRUG USE FOR UNKNOWN INDICATION
  4. CITRACAL + D [Concomitant]
     Indication: DRUG USE FOR UNKNOWN INDICATION
  5. LOVAZA [Concomitant]
     Indication: DRUG USE FOR UNKNOWN INDICATION
  6. CHONDROITIN [Concomitant]
     Indication: DRUG USE FOR UNKNOWN INDICATION
  7. OSTEO-BI-FLEX [Concomitant]
     Indication: DRUG USE FOR UNKNOWN INDICATION
  8. MIRALAX [Concomitant]
     Indication: DRUG USE FOR UNKNOWN INDICATION
  9. CELEBREX [Concomitant]
     Indication: DRUG USE FOR UNKNOWN INDICATION
  10. ALLERGY TABLET [Concomitant]
     Indication: DRUG USE FOR UNKNOWN INDICATION

REACTIONS (9)
  - ERUCTATION [None]
  - ERYTHEMA [None]
  - FEELING ABNORMAL [None]
  - FLATULENCE [None]
  - FLUSHING [None]
  - FREQUENT BOWEL MOVEMENTS [None]
  - HEADACHE [None]
  - NAUSEA [None]
  - PALPITATIONS [None]
